FAERS Safety Report 17420483 (Version 1)
Quarter: 2020Q1

REPORT INFORMATION
  Report Type: Other
  Country: CA (occurrence: CA)
  Receive Date: 20200214
  Receipt Date: 20200214
  Transmission Date: 20200409
  Serious: Yes (Disabling)
  Sender: FDA-Public Use
  Company Number: CA-APOTEX-2020AP007670

PATIENT
  Sex: Female
  Weight: 129.25 kg

DRUGS (1)
  1. LEVOFLOXACIN. [Suspect]
     Active Substance: LEVOFLOXACIN
     Indication: PNEUMONIA
     Dosage: QD  (DOSE: 750 UNIT UNSPECIFIED)
     Route: 048

REACTIONS (3)
  - Joint swelling [Unknown]
  - Arthralgia [Unknown]
  - Hypoaesthesia [Unknown]
